FAERS Safety Report 4379848-8 (Version None)
Quarter: 2004Q2

REPORT INFORMATION
  Report Type: 
  Country: None (occurrence: None)
  Receive Date: 20040614
  Receipt Date: 20040402
  Transmission Date: 20050107
  Serious: Yes (Life-Threatening, Hospitalization, Other)
  Sender: FDA-Public Use
  Company Number: RB-601-2004

PATIENT
  Age: 28 Year
  Sex: Male

DRUGS (3)
  1. BUPRENORPHINE HCL [Suspect]
     Indication: DRUG DEPENDENCE
     Dosage: 20 MG, 60 MG IV
     Route: 042
     Dates: start: 20040318, end: 20040318
  2. METHADONE HCL [Suspect]
     Indication: DRUG DEPENDENCE
     Dosage: 90 MG/110 MG  PO
     Route: 048
     Dates: start: 20040319, end: 20040319
  3. METHADONE HCL [Suspect]
     Indication: DRUG DEPENDENCE
     Dosage: 90 MG/110 MG  PO
     Route: 048
     Dates: start: 20040320, end: 20040320

REACTIONS (4)
  - COMA [None]
  - INTENTIONAL MISUSE [None]
  - OVERDOSE [None]
  - RESPIRATORY DISTRESS [None]
